FAERS Safety Report 9284275 (Version 1)
Quarter: 2013Q2

REPORT INFORMATION
  Report Type: Spontaneous
  Country: US (occurrence: US)
  Receive Date: 20130510
  Receipt Date: 20130510
  Transmission Date: 20140414
  Serious: No
  Sender: FDA-Public Use
  Company Number: US-COVIDIEN/TYCO HEALTHCARE/MALLINCKRODT-T201301160

PATIENT
  Sex: Male

DRUGS (4)
  1. FENTANYL TRANSDERMAL SYSTEM [Suspect]
     Indication: PRODUCT USED FOR UNKNOWN INDICATION
     Dosage: 25 MCG/HR Q 3 DAYS
     Route: 062
  2. PERCOCET                           /00867901/ [Concomitant]
     Dosage: 7.5/325
  3. ANTIHYPERTENSIVES [Concomitant]
     Dosage: UNK
  4. ZOCOR [Concomitant]
     Dosage: UNK

REACTIONS (4)
  - Nightmare [Unknown]
  - Insomnia [Unknown]
  - Anxiety [Unknown]
  - Drug effect decreased [Unknown]
